FAERS Safety Report 8559789-2 (Version None)
Quarter: 2012Q3

REPORT INFORMATION
  Report Type: 
  Country: None (occurrence: None)
  Receive Date: 20120802
  Receipt Date: 20120730
  Transmission Date: 20120928
  Serious: Yes (Other)
  Sender: FDA-Public Use
  Company Number: JP-PFIZER INC-2012184485

PATIENT

DRUGS (1)
  1. DOXAZOSIN MESYLATE [Suspect]
     Dosage: UNK
     Route: 048

REACTIONS (1)
  - PULMONARY EMBOLISM [None]
